FAERS Safety Report 14752235 (Version 2)
Quarter: 2018Q2

REPORT INFORMATION
  Report Type: Report from Study
  Country: TR (occurrence: TR)
  Receive Date: 20180412
  Receipt Date: 20180414
  Transmission Date: 20180711
  Serious: Yes (Death)
  Sender: FDA-Public Use
  Company Number: TR-AMGEN-TURSP2018048791

PATIENT
  Age: 44 Year
  Sex: Male
  Weight: 65 kg

DRUGS (2)
  1. DARBEPOETIN ALFA [Suspect]
     Active Substance: DARBEPOETIN ALFA
     Indication: ANAEMIA
     Dosage: 40 UNK, UNK (ARA 40)
     Route: 058
     Dates: start: 20171221, end: 20180203
  2. ZEMPLAR [Concomitant]
     Active Substance: PARICALCITOL
     Indication: BLOOD PARATHYROID HORMONE INCREASED
     Dosage: 2 ML, QWK
     Dates: start: 2016, end: 2018

REACTIONS (1)
  - Accident at work [Fatal]

NARRATIVE: CASE EVENT DATE: 20180204
